FAERS Safety Report 16183469 (Version 7)
Quarter: 2019Q3

REPORT INFORMATION
  Report Type: Spontaneous
  Country: PT (occurrence: PT)
  Receive Date: 20190411
  Receipt Date: 20190801
  Transmission Date: 20191004
  Serious: Yes (Hospitalization, Other)
  Sender: FDA-Public Use
  Company Number: PT-ASTELLAS-2019US015340

PATIENT
  Age: 48 Year
  Sex: Female

DRUGS (4)
  1. EVEROLIMUS. [Suspect]
     Active Substance: EVEROLIMUS
     Indication: LUNG TRANSPLANT
     Dosage: UNK UNK, UNKNOWN FREQ.
     Route: 065
  2. PREDNISOLONE. [Suspect]
     Active Substance: PREDNISOLONE
     Indication: LUNG TRANSPLANT
     Dosage: UNK UNK, UNKNOWN FREQ.
     Route: 065
  3. MYCOPHENOLATE MOFETIL. [Suspect]
     Active Substance: MYCOPHENOLATE MOFETIL
     Indication: LUNG TRANSPLANT
     Dosage: UNK UNK, UNKNOWN FREQ.
     Route: 065
  4. TACROLIMUS. [Suspect]
     Active Substance: TACROLIMUS
     Indication: LUNG TRANSPLANT
     Dosage: UNK, UNKNOWN FREQ.
     Route: 048
     Dates: end: 201708

REACTIONS (11)
  - Aortic thrombosis [Unknown]
  - Pericardial effusion [Unknown]
  - Lung infection [Unknown]
  - Product use in unapproved indication [Unknown]
  - Immunosuppressant drug level increased [Unknown]
  - Thrombotic microangiopathy [Recovered/Resolved]
  - Haemodynamic instability [Unknown]
  - Renal impairment [Not Recovered/Not Resolved]
  - Staphylococcal infection [Recovered/Resolved]
  - Skin infection [Unknown]
  - Renal artery thrombosis [Unknown]

NARRATIVE: CASE EVENT DATE: 201702
